FAERS Safety Report 18275749 (Version 2)
Quarter: 2020Q4

REPORT INFORMATION
  Report Type: Report from Study
  Country: BR (occurrence: BR)
  Receive Date: 20200916
  Receipt Date: 20201002
  Transmission Date: 20210113
  Serious: Yes (Other)
  Sender: FDA-Public Use
  Company Number: NVSC2020BR251690

PATIENT
  Age: 45 Year
  Sex: Female

DRUGS (10)
  1. ESCITALOPRAM [Concomitant]
     Active Substance: ESCITALOPRAM OXALATE
     Indication: ANXIETY
     Dosage: 1 DF (10 MG), QD (AT NIGHT), 8 MONTHS AGO
     Route: 048
  2. EXFORGE HCT [Suspect]
     Active Substance: AMLODIPINE BESYLATE\HYDROCHLOROTHIAZIDE\VALSARTAN
     Indication: HYPERTENSION
     Dosage: 1 DF, QD
     Route: 065
     Dates: start: 20200720
  3. INSULIN [Concomitant]
     Active Substance: INSULIN NOS
     Indication: PRODUCT USED FOR UNKNOWN INDICATION
     Dosage: UNK
     Route: 065
  4. CLONAZEPAM. [Concomitant]
     Active Substance: CLONAZEPAM
     Indication: SEDATIVE THERAPY
     Dosage: 1 DF (2 MG), QD (AT NIGHT), 5 YEARS AGO
     Route: 065
  5. INSULINA NPH [Concomitant]
     Active Substance: INSULIN HUMAN
     Dosage: 20 IU IN THE MORNING AND 20 IU AT NIGHT (BID)
     Route: 058
     Dates: start: 20200727
  6. RIVOTRIL [Concomitant]
     Active Substance: CLONAZEPAM
     Indication: SEDATIVE THERAPY
     Dosage: 1 DF (2 MG), QD (AT NIGHT), 5 YEARS AGO
     Route: 048
  7. EXFORGE HCT [Suspect]
     Active Substance: AMLODIPINE BESYLATE\HYDROCHLOROTHIAZIDE\VALSARTAN
     Dosage: UNK, LAST DOSE
     Route: 065
     Dates: start: 20200924
  8. LUFTAL [Concomitant]
     Active Substance: DIMETHICONE
     Indication: FLATULENCE
     Dosage: 1 DF (10 MG), QD, ABOUT 2 MONTH AGO
     Route: 048
  9. INSULINA NPH [Concomitant]
     Active Substance: INSULIN HUMAN
     Indication: TYPE 2 DIABETES MELLITUS
     Dosage: 20 IU IN THE MORNING AND 30 IU AT NIGHT, BID
     Route: 058
     Dates: start: 202006, end: 20200727
  10. LUFTAL [Concomitant]
     Active Substance: DIMETHICONE
     Indication: SWELLING

REACTIONS (6)
  - Blindness [Unknown]
  - Hyperglycaemia [Recovered/Resolved]
  - Product availability issue [Unknown]
  - Diabetes mellitus [Unknown]
  - Visual impairment [Unknown]
  - Hypertension [Not Recovered/Not Resolved]

NARRATIVE: CASE EVENT DATE: 20200925
